FAERS Safety Report 19005543 (Version 1)
Quarter: 2021Q1

REPORT INFORMATION
  Report Type: Spontaneous
  Country: BR (occurrence: BR)
  Receive Date: 20210313
  Receipt Date: 20210313
  Transmission Date: 20210420
  Serious: Yes (Death, Other)
  Sender: FDA-Public Use
  Company Number: BR-JNJFOC-20190826288

PATIENT
  Age: 42 Year
  Sex: Male

DRUGS (3)
  1. IMOSEC [Suspect]
     Active Substance: LOPERAMIDE
     Indication: DIARRHOEA
     Route: 065
     Dates: start: 20190627
  2. SUTENT [Suspect]
     Active Substance: SUNITINIB MALATE
     Indication: METASTASES TO LUNG
     Route: 048
     Dates: start: 20190607
  3. SUTENT [Suspect]
     Active Substance: SUNITINIB MALATE
     Indication: RENAL CANCER

REACTIONS (5)
  - Metastases to liver [Unknown]
  - Drug ineffective [Unknown]
  - Metastases to lung [Fatal]
  - Vomiting [Unknown]
  - Intestinal metastasis [Unknown]
